FAERS Safety Report 6972276-8 (Version None)
Quarter: 2010Q3

REPORT INFORMATION
  Report Type: 
  Country: None (occurrence: None)
  Receive Date: 20100909
  Receipt Date: 20100826
  Transmission Date: 20110219
  Serious: Yes (Hospitalization, Other)
  Sender: FDA-Public Use
  Company Number: ES-ELI_LILLY_AND_COMPANY-ES201008008688

PATIENT
  Sex: Female
  Weight: 108 kg

DRUGS (2)
  1. FORTEO [Suspect]
     Indication: OSTEOPOROSIS
     Dosage: 20 UG, DAILY (1/D)
     Route: 058
     Dates: start: 20091013, end: 20100601
  2. CLEXANE [Concomitant]
     Indication: PULMONARY VASCULAR DISORDER
     Dosage: 1 D/F, DAILY (1/D)
     Route: 058
     Dates: start: 20100601

REACTIONS (4)
  - ABASIA [None]
  - DEVICE BREAKAGE [None]
  - FALL [None]
  - HIP ARTHROPLASTY [None]
